FAERS Safety Report 6565756-0 (Version None)
Quarter: 2010Q1

REPORT INFORMATION
  Report Type: 
  Country: None (occurrence: None)
  Receive Date: 20100201
  Receipt Date: 20100105
  Transmission Date: 20100710
  Serious: No
  Sender: FDA-Public Use
  Company Number: US-ABBOTT-09P-163-0616652-00

PATIENT
  Sex: Male
  Weight: 113.5 kg

DRUGS (15)
  1. LUPRON DEPOT [Suspect]
     Indication: PROSTATE CANCER
     Route: 030
     Dates: start: 20090701
  2. POTASSIUM [Concomitant]
     Indication: DRUG USE FOR UNKNOWN INDICATION
     Route: 048
  3. ZESTRIL [Concomitant]
     Indication: HYPERTENSION
     Route: 048
  4. COREG [Concomitant]
     Indication: HYPERTENSION
     Dosage: 12.5MG AND 6.25MG, TWO DAILY
     Route: 048
  5. LASIX [Concomitant]
     Indication: DIURETIC THERAPY
     Dosage: 1/2 TAB DAILY
     Route: 048
  6. ASPIRIN [Concomitant]
     Indication: DRUG USE FOR UNKNOWN INDICATION
     Route: 048
  7. ZOCOR [Concomitant]
     Indication: BLOOD CHOLESTEROL INCREASED
     Route: 048
  8. NORVASC [Concomitant]
     Indication: HYPERTENSION
     Route: 048
  9. CLONIDINE [Concomitant]
     Indication: HYPERTENSION
     Route: 048
  10. CLONIDINE [Concomitant]
     Route: 048
  11. TURMERIC [Concomitant]
     Indication: DRUG USE FOR UNKNOWN INDICATION
  12. CALCIUM [Concomitant]
     Indication: MINERAL SUPPLEMENTATION
  13. LANTUS [Concomitant]
     Indication: DIABETES MELLITUS
     Route: 058
  14. LANTUS [Concomitant]
     Route: 058
  15. NOVOLOG [Concomitant]
     Indication: DIABETES MELLITUS
     Dosage: SLIDING SCALE
     Route: 058

REACTIONS (3)
  - BLOOD GLUCOSE ABNORMAL [None]
  - BLOOD PRESSURE INCREASED [None]
  - WEIGHT INCREASED [None]
